FAERS Safety Report 19699778 (Version 1)
Quarter: 2021Q3

REPORT INFORMATION
  Report Type: Spontaneous
  Country: US (occurrence: US)
  Receive Date: 20210813
  Receipt Date: 20210813
  Transmission Date: 20211014
  Serious: No
  Sender: FDA-Public Use
  Company Number: US-ELI_LILLY_AND_COMPANY-US202107013255

PATIENT
  Sex: Male

DRUGS (1)
  1. ZYPREXA [Suspect]
     Active Substance: OLANZAPINE
     Indication: MENTAL DISORDER
     Dosage: UNK UNK, UNKNOWN
     Route: 065
     Dates: start: 2016, end: 2020

REACTIONS (2)
  - Emotional distress [Unknown]
  - Psychological trauma [Unknown]
